FAERS Safety Report 6883754-4 (Version None)
Quarter: 2010Q3

REPORT INFORMATION
  Report Type: 
  Country: None (occurrence: None)
  Receive Date: 20100729
  Receipt Date: 20100722
  Transmission Date: 20110219
  Serious: Yes (Hospitalization)
  Sender: FDA-Public Use
  Company Number: B0666471A

PATIENT
  Age: 45 Year
  Sex: Male
  Weight: 94 kg

DRUGS (4)
  1. AVANDAMET [Suspect]
     Route: 048
     Dates: start: 20090210, end: 20100714
  2. AVANDIA [Suspect]
     Route: 048
     Dates: start: 20061101, end: 20090210
  3. UNKNOWN DRUG [Concomitant]
     Dates: start: 20090210, end: 20100714
  4. INSULIN [Concomitant]
     Route: 065

REACTIONS (3)
  - ACCIDENT [None]
  - FEMUR FRACTURE [None]
  - GLYCOSYLATED HAEMOGLOBIN INCREASED [None]
